FAERS Safety Report 25712125 (Version 1)
Quarter: 2025Q3

REPORT INFORMATION
  Report Type: Spontaneous
  Country: EG (occurrence: EG)
  Receive Date: 20250821
  Receipt Date: 20250821
  Transmission Date: 20251020
  Serious: Yes (Death, Hospitalization, Disabling)
  Sender: GE HEALTHCARE
  Company Number: EG-GE HEALTHCARE-2025CSU011419

PATIENT
  Age: 77 Year
  Sex: Female

DRUGS (1)
  1. OMNIPAQUE [Suspect]
     Active Substance: IOHEXOL
     Indication: Percutaneous coronary intervention
     Route: 013
     Dates: start: 20240712, end: 20240712

REACTIONS (3)
  - Blood creatinine increased [Fatal]
  - Pulmonary oedema [Fatal]
  - Shock [Fatal]

NARRATIVE: CASE EVENT DATE: 20240712
